FAERS Safety Report 5218178-9 (Version None)
Quarter: 2007Q1

REPORT INFORMATION
  Report Type: 
  Country: None (occurrence: None)
  Receive Date: 20061130
  Receipt Date: 20060712
  Transmission Date: 20070707
  Serious: Yes (Hospitalization, Other)
  Sender: FDA-Public Use
  Company Number: US200603000193

PATIENT
  Age: 42 Year
  Sex: Female
  Weight: 103.4 kg

DRUGS (14)
  1. ZYPREXA [Suspect]
     Indication: SCHIZOPHRENIA
     Dosage: SEE IMAGE
     Dates: start: 20000804, end: 20000823
  2. ZYPREXA [Suspect]
     Indication: SCHIZOPHRENIA
     Dosage: SEE IMAGE
     Dates: start: 20001004, end: 20001010
  3. ZYPREXA [Suspect]
     Indication: SCHIZOPHRENIA
     Dosage: SEE IMAGE
     Dates: start: 20011209, end: 20011213
  4. ZYPREXA [Suspect]
     Indication: SCHIZOPHRENIA
     Dosage: SEE IMAGE
     Dates: start: 20040801
  5. ZYPREXA [Suspect]
     Indication: SCHIZOPHRENIA
     Dosage: SEE IMAGE
     Dates: start: 20041201
  6. ZYPREXA [Suspect]
     Indication: SCHIZOPHRENIA
     Dosage: SEE IMAGE
     Dates: start: 20050319
  7. PROZAC [Concomitant]
  8. RISPERDAL [Concomitant]
  9. HALDOL SOLUTAB [Concomitant]
  10. PROLIXIN DECANOATE (FLUPHENAZINE DECANOATE) [Concomitant]
  11. DEPAKOTE [Concomitant]
  12. WELLBUTRIN [Concomitant]
  13. SERZONE [Concomitant]
  14. MICROZIDE [Concomitant]

REACTIONS (6)
  - DIABETES MELLITUS INSULIN-DEPENDENT [None]
  - DIABETIC KETOACIDOSIS [None]
  - HYPERGLYCAEMIA [None]
  - INSULIN RESISTANCE [None]
  - POLLAKIURIA [None]
  - WEIGHT INCREASED [None]
